FAERS Safety Report 8607343 (Version 2)
Quarter: 2013Q3

REPORT INFORMATION
  Report Type: Spontaneous
  Country: US (occurrence: US)
  Receive Date: 20120611
  Receipt Date: 20130722
  Transmission Date: 20140515
  Serious: Yes (Hospitalization)
  Sender: FDA-Public Use
  Company Number: US-ASTRAZENECA-2012SE34739

PATIENT
  Age: 62 Year
  Sex: Female
  Weight: 59 kg

DRUGS (13)
  1. NEXIUM [Suspect]
     Indication: GASTROOESOPHAGEAL REFLUX DISEASE
     Route: 048
     Dates: start: 2004
  2. NEXIUM [Suspect]
     Indication: GASTROOESOPHAGEAL REFLUX DISEASE
     Route: 048
  3. ZANTAC [Concomitant]
  4. TITRALAC [Concomitant]
  5. PEPTO BISMOL [Concomitant]
  6. TUMS [Concomitant]
  7. ATORVASTATIN [Concomitant]
     Indication: BLOOD CHOLESTEROL ABNORMAL
  8. MAXALT [Concomitant]
     Indication: MIGRAINE
  9. TOPAMAX [Concomitant]
     Indication: MIGRAINE
  10. SYNTHROID [Concomitant]
     Indication: THYROID DISORDER
  11. IRBESARTAN [Concomitant]
     Indication: BLOOD PRESSURE
  12. IRON [Concomitant]
  13. CITRACAL CALCIUM + D [Concomitant]
     Dosage: TWO TIMES A DAY

REACTIONS (10)
  - Spinal fracture [Unknown]
  - Osteoporosis [Unknown]
  - Accident [Unknown]
  - Anxiety [Unknown]
  - Multiple fractures [Unknown]
  - Back pain [Unknown]
  - Bone pain [Unknown]
  - Clavicle fracture [Unknown]
  - Gastrointestinal disorder [Unknown]
  - Depression [Unknown]
